FAERS Safety Report 10141879 (Version 2)
Quarter: 2014Q2

REPORT INFORMATION
  Report Type: Spontaneous
  Country: US (occurrence: US)
  Receive Date: 20140429
  Receipt Date: 20140605
  Transmission Date: 20141212
  Serious: Yes (Hospitalization, Other)
  Sender: FDA-Public Use
  Company Number: US-PFIZER INC-2014115523

PATIENT
  Age: 64 Year
  Sex: Male
  Weight: 94.79 kg

DRUGS (3)
  1. LYRICA [Suspect]
     Indication: DIABETIC NEUROPATHY
     Dosage: 100 MG, 3X/DAY
     Route: 048
     Dates: start: 2012, end: 201404
  2. PLAVIX [Concomitant]
     Dosage: 75 MG, UNK
  3. BABY ASPIRIN [Concomitant]
     Dosage: 81 MG, UNK

REACTIONS (10)
  - Cardiac failure congestive [Unknown]
  - Diabetes mellitus [Unknown]
  - Activities of daily living impaired [Unknown]
  - Insomnia [Unknown]
  - Agitation [Unknown]
  - Depression [Unknown]
  - Aggression [Unknown]
  - Peripheral swelling [Unknown]
  - Musculoskeletal pain [Unknown]
  - Abnormal behaviour [Unknown]
